FAERS Safety Report 4664057-5 (Version None)
Quarter: 2005Q2

REPORT INFORMATION
  Report Type: 
  Country: None (occurrence: None)
  Receive Date: 20050516
  Receipt Date: 20050504
  Transmission Date: 20051028
  Serious: Yes (Hospitalization, Other)
  Sender: FDA-Public Use
  Company Number: ATO-05-0156

PATIENT
  Age: 70 Year
  Sex: Female
  Weight: 72 kg

DRUGS (4)
  1. TRISENOX [Suspect]
     Indication: MULTIPLE MYELOMA
     Dosage: 18 MG (18 MG, 5 DOSE LOAD; 2X/WK), IVI
     Route: 042
     Dates: start: 20050228, end: 20050426
  2. THALOMID [Suspect]
     Indication: MULTIPLE MYELOMA
     Dosage: 50 MG (50 MG, DAILY), ORAL
     Route: 048
     Dates: start: 20050228, end: 20050430
  3. DEXAMETHASONE [Suspect]
     Indication: MULTIPLE MYELOMA
     Dosage: 20 MG (20 MG, 4X/WK), ORAL
     Route: 048
     Dates: start: 20050228, end: 20050420
  4. ASCORBIC ACID [Suspect]
     Indication: MULTIPLE MYELOMA
     Dosage: 1000 MG (1000 MG, 2X/WK), IVI
     Route: 042
     Dates: start: 20050228, end: 20050426

REACTIONS (3)
  - ABDOMINAL PAIN [None]
  - DYSPEPSIA [None]
  - LARGE INTESTINE PERFORATION [None]
